FAERS Safety Report 12528102 (Version 2)
Quarter: 2016Q3

REPORT INFORMATION
  Report Type: Spontaneous
  Country: ES (occurrence: ES)
  Receive Date: 20160705
  Receipt Date: 20160728
  Transmission Date: 20161109
  Serious: Yes (Death, Other)
  Sender: FDA-Public Use
  Company Number: ES-PFIZER INC-2016313346

PATIENT
  Age: 61 Year
  Sex: Female
  Weight: 46 kg

DRUGS (2)
  1. NAB-PACLITAXEL [Suspect]
     Active Substance: PACLITAXEL
     Indication: ADENOCARCINOMA PANCREAS
     Dosage: 50 MG/M2, DAYS 1, 8 AND 15
     Route: 042
     Dates: start: 201311
  2. GEMCITABINE HYDROCHLORIDE. [Suspect]
     Active Substance: GEMCITABINE HYDROCHLORIDE
     Indication: ADENOCARCINOMA PANCREAS
     Dosage: 400 MG/M2, DAYS 1, 8 AND 15
     Route: 042
     Dates: start: 201311

REACTIONS (8)
  - Cholangitis acute [Fatal]
  - Anaemia [Unknown]
  - Lymphopenia [Unknown]
  - Oedema peripheral [Unknown]
  - Hepatotoxicity [Unknown]
  - Diarrhoea [Unknown]
  - Asthenia [Unknown]
  - Vomiting [Unknown]
